FAERS Safety Report 18949272 (Version 3)
Quarter: 2022Q1

REPORT INFORMATION
  Report Type: Spontaneous
  Country: US (occurrence: None)
  Receive Date: 20210227
  Receipt Date: 20220314
  Transmission Date: 20220424
  Serious: No
  Sender: FDA-Public Use
  Company Number: US-ROCHE-2624114

PATIENT
  Sex: Female

DRUGS (1)
  1. XOLAIR [Suspect]
     Active Substance: OMALIZUMAB
     Indication: Urticaria
     Dosage: EVERY OTHER WEEK?FORM STRENGTH: 150 MG/ML
     Route: 058
     Dates: start: 20200620

REACTIONS (3)
  - Intentional product use issue [Unknown]
  - Off label use [Unknown]
  - No adverse event [Unknown]
